FAERS Safety Report 8879610 (Version 1)
Quarter: 2012Q4

REPORT INFORMATION
  Report Type: 
  Country: US (occurrence: US)
  Receive Date: 20121031
  Receipt Date: 20121031
  Transmission Date: 20130627
  Serious: Yes (Hospitalization)
  Sender: FDA-Public Use
  Company Number: US-GLAXOSMITHKLINE-A0817908A

PATIENT
  Sex: Male
  Weight: 84.1 kg

DRUGS (3)
  1. AVANDIA [Suspect]
     Indication: DIABETES MELLITUS
     Route: 048
     Dates: start: 19970101, end: 20100409
  2. AVANDAMET [Suspect]
     Indication: DIABETES MELLITUS
     Route: 048
  3. AVANDARYL [Suspect]
     Indication: DIABETES MELLITUS
     Route: 048

REACTIONS (2)
  - Intracardiac thrombus [Recovering/Resolving]
  - Cardiac failure congestive [Unknown]
